FAERS Safety Report 4382939-9 (Version None)
Quarter: 2004Q2

REPORT INFORMATION
  Report Type: 
  Country: None (occurrence: None)
  Receive Date: 20040617
  Receipt Date: 20040602
  Transmission Date: 20050107
  Serious: Yes (Other)
  Sender: FDA-Public Use
  Company Number: QUIN-263

PATIENT
  Age: 53 Year
  Sex: Female

DRUGS (2)
  1. SOLARAZE [Suspect]
     Indication: ACTINIC KERATOSIS
     Dosage: 1 APPLICATION BID TP
     Route: 061
     Dates: start: 20040109, end: 20040322
  2. VITAMINS NOS [Concomitant]

REACTIONS (1)
  - ULCER HAEMORRHAGE [None]
